FAERS Safety Report 22203208 (Version 1)
Quarter: 2023Q2

REPORT INFORMATION
  Report Type: Report from Study
  Country: EG (occurrence: EG)
  Receive Date: 20230412
  Receipt Date: 20230412
  Transmission Date: 20230721
  Serious: Yes (Other)
  Sender: FDA-Public Use
  Company Number: EG-002147023-NVSC2023EG083379

PATIENT
  Sex: Female

DRUGS (3)
  1. KISQALI [Suspect]
     Active Substance: RIBOCICLIB
     Indication: Breast cancer metastatic
     Dosage: 2 DOSAGE FORM, QD (2 TABLETS ONCE DAILY FOR 21 DAYS AND 1 WEEK OFF)
     Route: 048
     Dates: start: 20230401
  2. CALCIUM [Concomitant]
     Active Substance: CALCIUM
     Indication: Vitamin supplementation
     Dosage: UNK
     Route: 065
  3. FEMARA [Concomitant]
     Active Substance: LETROZOLE
     Indication: Neoplasm malignant
     Dosage: 1 DOSAGE FORM, QD
     Route: 065
     Dates: start: 202302

REACTIONS (3)
  - Metastases to bone [Not Recovered/Not Resolved]
  - Bone pain [Not Recovered/Not Resolved]
  - Mobility decreased [Not Recovered/Not Resolved]
